FAERS Safety Report 4731663-9 (Version None)
Quarter: 2005Q3

REPORT INFORMATION
  Report Type: 
  Country: None (occurrence: None)
  Receive Date: 20050719
  Receipt Date: 20050215
  Transmission Date: 20060218
  Serious: Yes (Hospitalization)
  Sender: FDA-Public Use
  Company Number: 2005BI003740

PATIENT
  Age: 58 Year
  Sex: Female
  Weight: 65.7716 kg

DRUGS (2)
  1. AVONEX [Suspect]
     Indication: MULTIPLE SCLEROSIS
     Dosage: 30 UG;QW;IM
     Route: 030
     Dates: start: 19990101, end: 19990101
  2. KLONOPIN [Concomitant]

REACTIONS (3)
  - DEPRESSION [None]
  - FATIGUE [None]
  - PAIN IN EXTREMITY [None]
